FAERS Safety Report 23863890 (Version 3)
Quarter: 2025Q1

REPORT INFORMATION
  Report Type: Report from Study
  Country: US (occurrence: US)
  Receive Date: 20240516
  Receipt Date: 20250331
  Transmission Date: 20250409
  Serious: Yes (Other)
  Sender: ABBVIE
  Company Number: US-ABBVIE-5627788

PATIENT
  Age: 60 Year
  Sex: Female

DRUGS (2)
  1. RINVOQ [Suspect]
     Active Substance: UPADACITINIB
     Indication: Rheumatoid arthritis
     Route: 048
     Dates: start: 20200804
  2. RINVOQ [Suspect]
     Active Substance: UPADACITINIB
     Indication: Rheumatoid arthritis
     Route: 048
     Dates: start: 20200824

REACTIONS (8)
  - Sciatica [Recovered/Resolved]
  - Musculoskeletal disorder [Unknown]
  - Arthralgia [Recovering/Resolving]
  - Intervertebral disc protrusion [Recovered/Resolved]
  - Arthritis [Unknown]
  - Dysstasia [Unknown]
  - Arthropathy [Unknown]
  - Arthralgia [Not Recovered/Not Resolved]

NARRATIVE: CASE EVENT DATE: 20231001
